FAERS Safety Report 19298741 (Version 3)
Quarter: 2023Q2

REPORT INFORMATION
  Report Type: Report from Study
  Country: US (occurrence: None)
  Receive Date: 20210525
  Receipt Date: 20230417
  Transmission Date: 20230721
  Serious: Yes (Life-Threatening, Hospitalization)
  Sender: FDA-Public Use
  Company Number: US-ROCHE-2799307

PATIENT
  Age: 77 Year
  Sex: Male
  Weight: 68.7 kg

DRUGS (15)
  1. ATEZOLIZUMAB [Suspect]
     Active Substance: ATEZOLIZUMAB
     Indication: Small cell lung cancer
     Dosage: ON 10/FEB/2021, HE RECEIVED LAST DOSE OF ATEZOLIZUMAB PRIOR TO ONSET OF SERIOUS ADVERSE EVENT.
     Route: 041
     Dates: start: 20210111
  2. CARBOPLATIN [Suspect]
     Active Substance: CARBOPLATIN
     Indication: Small cell lung cancer
     Dosage: ON 10/FEB/2021, HE RECEIVED LAST DOSE OF CARBOPLATIN PRIOR TO ONSET OF SERIOUS ADVERSE EVENT.
     Route: 065
     Dates: start: 20210111
  3. ETOPOSIDE [Suspect]
     Active Substance: ETOPOSIDE
     Indication: Small cell lung cancer
     Dosage: ON 12/FEB/2021, HE RECEIVED LAST DOSE OF ETOPOSIDE PRIOR TO ONSET OF SERIOUS ADVERSE EVENT.
     Route: 065
     Dates: start: 20210111
  4. CLOPIDOGREL [Concomitant]
     Active Substance: CLOPIDOGREL BISULFATE
  5. APIXABAN [Concomitant]
     Active Substance: APIXABAN
  6. AMLODIPINE [Concomitant]
     Active Substance: AMLODIPINE BESYLATE
  7. ATORVASTATIN [Concomitant]
     Active Substance: ATORVASTATIN
  8. PANTOPRAZOLE [Concomitant]
     Active Substance: PANTOPRAZOLE
  9. METOPROLOL [Concomitant]
     Active Substance: METOPROLOL
  10. ALUMINUM HYDROXIDE [Concomitant]
     Active Substance: ALUMINUM HYDROXIDE
  11. FERROUS SULFATE [Concomitant]
     Active Substance: FERROUS SULFATE
  12. DIPHENHYDRAMINE [Concomitant]
     Active Substance: DIPHENHYDRAMINE
  13. LIDOCAINE [Concomitant]
     Active Substance: LIDOCAINE
  14. MAGNESIUM HYDROXIDE [Concomitant]
     Active Substance: MAGNESIUM HYDROXIDE
  15. SIMETHICONE (DIMETHICONE) [Concomitant]
     Active Substance: DIMETHICONE

REACTIONS (6)
  - Respiratory failure [Recovering/Resolving]
  - Acute myocardial infarction [Recovering/Resolving]
  - Hypertensive emergency [Recovered/Resolved]
  - Cardiac failure congestive [Recovering/Resolving]
  - Acute kidney injury [Recovered/Resolved]
  - Neutropenic sepsis [Recovering/Resolving]

NARRATIVE: CASE EVENT DATE: 20210301
